FAERS Safety Report 7598302-3 (Version None)
Quarter: 2011Q3

REPORT INFORMATION
  Report Type: 
  Country: None (occurrence: None)
  Receive Date: 20110708
  Receipt Date: 20110623
  Transmission Date: 20111222
  Serious: Yes (Hospitalization)
  Sender: FDA-Public Use
  Company Number: GB-WATSON-2011-08661

PATIENT
  Age: 83 Year
  Sex: Female

DRUGS (10)
  1. CORTICOSTEROID NOS [Concomitant]
     Indication: PRODUCT USED FOR UNKNOWN INDICATION
     Route: 065
  2. METHADONE HCL [Suspect]
     Indication: IMMUNE TOLERANCE INDUCTION
     Route: 065
  3. CELECOXIB [Concomitant]
     Indication: PRODUCT USED FOR UNKNOWN INDICATION
     Route: 065
  4. FENTANYL [Suspect]
     Indication: PRODUCT USED FOR UNKNOWN INDICATION
     Dosage: 200 MCG, UNK
     Route: 002
  5. TRAMADOL HCL [Suspect]
     Indication: IMMUNE TOLERANCE INDUCTION
     Dosage: 50 MG, DAILY
     Route: 065
  6. ACETAMINOPHEN W/ CODEINE [Suspect]
     Indication: IMMUNE TOLERANCE INDUCTION
     Route: 048
  7. DEXTROMORAMIDE [Suspect]
     Indication: PRODUCT USED FOR UNKNOWN INDICATION
     Dosage: 5 MG, UNK
     Route: 065
  8. PAMIDRONATE DISODIUM [Concomitant]
     Indication: PRODUCT USED FOR UNKNOWN INDICATION
     Dosage: ONCE EVERY 4 WEEKS
     Route: 042
  9. MORPHINE SULFATE [Suspect]
     Indication: IMMUNE TOLERANCE INDUCTION
     Dosage: 5 MG, UNK
     Route: 065
  10. OXYCODONE HCL [Suspect]
     Indication: PRODUCT USED FOR UNKNOWN INDICATION
     Dosage: 2.5 MG
     Route: 065

REACTIONS (7)
  - FLUSHING [None]
  - PRURITUS [None]
  - HYPERHIDROSIS [None]
  - VOMITING [None]
  - DIZZINESS [None]
  - FEELING HOT [None]
  - TYPE I HYPERSENSITIVITY [None]
